FAERS Safety Report 4309635-8 (Version None)
Quarter: 2004Q1

REPORT INFORMATION
  Report Type: 
  Country: None (occurrence: None)
  Receive Date: 20040302
  Receipt Date: 20040220
  Transmission Date: 20041129
  Serious: Yes (Hospitalization, Other)
  Sender: FDA-Public Use
  Company Number: US-JNJFOC-20040204994

PATIENT
  Age: 72 Year
  Sex: Female

DRUGS (13)
  1. REMICADE [Suspect]
     Indication: RHEUMATOID ARTHRITIS
     Dosage: INTRAVENOUS
     Route: 042
     Dates: start: 20010701, end: 20010701
  2. METHOTREXATE [Concomitant]
  3. FOLIC ACID [Concomitant]
  4. ISOSORBIDE  (ISOSORBIDE) [Concomitant]
  5. LISINOPRIL [Concomitant]
  6. FUROSEMIDE [Concomitant]
  7. POTASSIUM (POTASSIUM) [Concomitant]
  8. ASPIRIN [Concomitant]
  9. MULTIVITAMIN (MULTIVITAMINS) [Concomitant]
  10. PREDNISONE [Concomitant]
  11. FOSAMAX [Concomitant]
  12. NORMIDYNE (ALL OTHER THERAPEUTIC PRODUCTS) [Concomitant]
  13. ALBUTEROL [Concomitant]

REACTIONS (7)
  - BLOOD GLUCOSE INCREASED [None]
  - BLOOD SODIUM DECREASED [None]
  - CARDIAC FAILURE CONGESTIVE [None]
  - CHRONIC OBSTRUCTIVE AIRWAYS DISEASE EXACERBATED [None]
  - ECHOCARDIOGRAM ABNORMAL [None]
  - EJECTION FRACTION DECREASED [None]
  - MITRAL VALVE INCOMPETENCE [None]
